FAERS Safety Report 9850062 (Version 1)
Quarter: 2014Q1

REPORT INFORMATION
  Report Type: Spontaneous
  Country: TW (occurrence: TW)
  Receive Date: 20140128
  Receipt Date: 20140128
  Transmission Date: 20141002
  Serious: Yes (Other)
  Sender: FDA-Public Use
  Company Number: TW-ELI_LILLY_AND_COMPANY-TW201401008607

PATIENT
  Age: 22 Year
  Sex: Male

DRUGS (3)
  1. OLANZAPINE [Suspect]
     Indication: AGITATION
     Dosage: UNK, OTHER
     Route: 065
  2. OLANZAPINE [Suspect]
     Indication: SELF INJURIOUS BEHAVIOUR
  3. VALPROATE [Concomitant]
     Dosage: 500 MG, QD

REACTIONS (10)
  - Hyponatraemia [Recovering/Resolving]
  - Blood antidiuretic hormone increased [Unknown]
  - Polydipsia [Recovered/Resolved]
  - Water intoxication [Unknown]
  - Hypokalaemia [Unknown]
  - Hypocalcaemia [Unknown]
  - Hypomagnesaemia [Unknown]
  - Off label use [Unknown]
  - Blood glucose increased [Unknown]
  - Glucose tolerance impaired [Unknown]
